FAERS Safety Report 10656741 (Version 2)
Quarter: 2015Q1

REPORT INFORMATION
  Report Type: Spontaneous
  Country: IT (occurrence: IT)
  Receive Date: 20141217
  Receipt Date: 20150320
  Transmission Date: 20150720
  Serious: Yes (Life-Threatening, Other)
  Sender: FDA-Public Use
  Company Number: IT-009507513-1412ITA007593

PATIENT
  Age: 21 Year
  Sex: Male

DRUGS (4)
  1. QUETIAPINE FUMARATE. [Suspect]
     Active Substance: QUETIAPINE FUMARATE
     Indication: SUICIDE ATTEMPT
     Dosage: 2 G DAILY
     Route: 048
     Dates: start: 20141124, end: 20141124
  2. MIRTAZAPINE. [Suspect]
     Active Substance: MIRTAZAPINE
     Indication: SUICIDE ATTEMPT
     Dosage: 30 TABLETS OF UNSPECIFIED STRENGTH FOR A TOTAL OF 1.5-3G
     Route: 048
     Dates: start: 20141124, end: 20141124
  3. ALCOHOL. [Concomitant]
     Active Substance: ALCOHOL
     Dosage: 75ML DAILY
     Dates: start: 20141124, end: 20141124
  4. ACETAMINOPHEN. [Suspect]
     Active Substance: ACETAMINOPHEN
     Indication: SUICIDE ATTEMPT
     Dosage: 5 G DAILY
     Route: 048
     Dates: start: 20141124, end: 20141124

REACTIONS (6)
  - Confusional state [Recovering/Resolving]
  - Epilepsy [Recovering/Resolving]
  - Tachycardia [Recovering/Resolving]
  - Toxicity to various agents [Recovering/Resolving]
  - Respiratory arrest [Recovering/Resolving]
  - Somnolence [Recovering/Resolving]

NARRATIVE: CASE EVENT DATE: 20141125
